FAERS Safety Report 8975234 (Version 1)
Quarter: 2012Q4

REPORT INFORMATION
  Report Type: 
  Country: US (occurrence: US)
  Receive Date: 20121219
  Receipt Date: 20121219
  Transmission Date: 20130627
  Serious: No
  Sender: FDA-Public Use
  Company Number: US-TARO-2012P1062796

PATIENT
  Age: 67 Year
  Sex: Female
  Weight: 54.43 kg

DRUGS (2)
  1. FLUOROURACIL [Suspect]
     Route: 061
     Dates: start: 20120323, end: 20121113
  2. FUROSEMIDE [Concomitant]

REACTIONS (3)
  - Accidental exposure to product [Recovered/Resolved]
  - Precancerous skin lesion [Recovering/Resolving]
  - Rash pruritic [Recovered/Resolved]
